FAERS Safety Report 8104359 (Version 3)
Quarter: 2013Q3

REPORT INFORMATION
  Report Type: Spontaneous
  Country: US (occurrence: US)
  Receive Date: 20110824
  Receipt Date: 20130909
  Transmission Date: 20140515
  Serious: Yes (Death)
  Sender: FDA-Public Use
  Company Number: US-GLAXOSMITHKLINE-A0915582A

PATIENT
  Age: 70 Year
  Sex: Male
  Weight: 90.9 kg

DRUGS (5)
  1. AVANDAMET [Suspect]
     Indication: DIABETES MELLITUS
     Route: 048
     Dates: start: 20100517, end: 20100616
  2. INSULIN [Concomitant]
  3. LIPITOR [Concomitant]
  4. PEPCID [Concomitant]
  5. LOPRESSOR [Concomitant]

REACTIONS (1)
  - Cardio-respiratory arrest [Fatal]
